FAERS Safety Report 25883282 (Version 1)
Quarter: 2025Q4

REPORT INFORMATION
  Report Type: Spontaneous
  Country: GB (occurrence: GB)
  Receive Date: 20251006
  Receipt Date: 20251006
  Transmission Date: 20260119
  Serious: Yes (Hospitalization, Other)
  Sender: ABBVIE
  Company Number: GB-ABBVIE-6451601

PATIENT

DRUGS (1)
  1. RINVOQ [Suspect]
     Active Substance: UPADACITINIB
     Indication: Crohn^s disease
     Route: 048

REACTIONS (28)
  - Neoplasm malignant [Unknown]
  - Hospitalisation [Unknown]
  - Opportunistic infection [Unknown]
  - Therapeutic product effect decreased [Unknown]
  - Nasopharyngitis [Unknown]
  - Drug ineffective [Unknown]
  - Blood creatine phosphokinase increased [Unknown]
  - Colitis ulcerative [Unknown]
  - Upper respiratory tract infection [Unknown]
  - Acne [Unknown]
  - Arthralgia [Unknown]
  - Headache [Unknown]
  - Anaemia [Unknown]
  - Infection [Unknown]
  - Herpes zoster [Unknown]
  - Liver disorder [Unknown]
  - Neutropenia [Unknown]
  - Lymphopenia [Unknown]
  - Back pain [Unknown]
  - Abdominal pain [Unknown]
  - Alanine aminotransferase increased [Unknown]
  - Folliculitis [Unknown]
  - Nephrolithiasis [Unknown]
  - Cyst [Unknown]
  - Clostridium difficile infection [Unknown]
  - Psoriasis [Unknown]
  - Blood cholesterol increased [Unknown]
  - Blood triglycerides increased [Unknown]
